FAERS Safety Report 6756208-3 (Version None)
Quarter: 2010Q2

REPORT INFORMATION
  Report Type: 
  Country: None (occurrence: None)
  Receive Date: 20100604
  Receipt Date: 20100602
  Transmission Date: 20101027
  Serious: Yes (Death, Other)
  Sender: FDA-Public Use
  Company Number: PHHY2010IN35644

PATIENT
  Age: 62 Year
  Sex: Female

DRUGS (1)
  1. ASUNRA [Suspect]

REACTIONS (3)
  - DEATH [None]
  - IRON OVERLOAD [None]
  - LEUKAEMIA [None]
